FAERS Safety Report 8796226 (Version 2)
Quarter: 2012Q4

REPORT INFORMATION
  Report Type: 
  Country: FR (occurrence: FR)
  Receive Date: 20120919
  Receipt Date: 20120927
  Transmission Date: 20130627
  Serious: Yes (Hospitalization)
  Sender: FDA-Public Use
  Company Number: FR-NAPPMUNDI-GBR-2012-0011407

PATIENT
  Age: 54 Year
  Sex: Male

DRUGS (14)
  1. SEVREDOL [Suspect]
     Indication: BONE PAIN
     Dosage: prn
     Route: 048
  2. DOXORUBICIN [Suspect]
     Indication: CHONDROSARCOMA
     Dosage: UNK
     Route: 042
     Dates: start: 20120620
  3. DOXORUBICIN [Suspect]
     Dosage: UNK
     Route: 042
     Dates: start: 20120711
  4. DOXORUBICIN [Suspect]
     Dosage: UNK
     Route: 042
     Dates: start: 20120801
  5. SOLUMEDROL(METHYLPREDNISOLONE SODIUM SUCCINATE) INFUSION [Suspect]
     Indication: CHONDROSARCOMA
     Dosage: 120 mg, UNK
     Route: 042
     Dates: start: 20120620
  6. SOLUMEDROL(METHYLPREDNISOLONE SODIUM SUCCINATE) INFUSION [Suspect]
     Dosage: 120 mg, UNK
     Route: 042
     Dates: start: 20120711
  7. SOLUMEDROL(METHYLPREDNISOLONE SODIUM SUCCINATE) INFUSION [Suspect]
     Dosage: 120 mg, UNK
     Route: 042
     Dates: start: 20120801
  8. DUROGESIC [Suspect]
     Indication: BONE PAIN
     Dosage: 75 mcg, (0.25 mcg once every 4 days)
     Route: 062
  9. LYRICA [Suspect]
     Indication: BONE PAIN
     Dosage: 2 DF, bid
     Route: 048
  10. ZOPHREN                            /00955301/ [Concomitant]
  11. FLUCONAZOLE [Concomitant]
  12. INEXIUM /01479302/ [Concomitant]
  13. SERESTA [Concomitant]
  14. VITAMIN B1 AND B6 [Concomitant]

REACTIONS (2)
  - Pancreatitis acute [Recovering/Resolving]
  - Rash pustular [None]
